FAERS Safety Report 7050173-X (Version None)
Quarter: 2010Q4

REPORT INFORMATION
  Report Type: 
  Country: None (occurrence: None)
  Receive Date: 20101018
  Receipt Date: 20101007
  Transmission Date: 20110411
  Serious: Yes (Hospitalization)
  Sender: FDA-Public Use
  Company Number: FR-ROCHE-732308

PATIENT
  Sex: Female

DRUGS (2)
  1. AVASTIN [Suspect]
     Dosage: DOSE: 2 DOSES
     Route: 065
     Dates: start: 20100901, end: 20100901
  2. TAXOL [Concomitant]

REACTIONS (2)
  - CARDIAC DISORDER [None]
  - EJECTION FRACTION DECREASED [None]
